FAERS Safety Report 13958154 (Version 1)
Quarter: 2017Q3

REPORT INFORMATION
  Report Type: Spontaneous
  Country: CA (occurrence: CA)
  Receive Date: 20170912
  Receipt Date: 20170912
  Transmission Date: 20171128
  Serious: Yes (Life-Threatening, Hospitalization, Other)
  Sender: FDA-Public Use
  Company Number: PHHY2017CA132358

PATIENT
  Age: 12 Day
  Sex: Male
  Weight: 3.9 kg

DRUGS (18)
  1. ARIPIPRAZOLE. [Suspect]
     Active Substance: ARIPIPRAZOLE
     Indication: FOETAL EXPOSURE DURING PREGNANCY
     Route: 063
  2. LEVOTHYROXINE. [Suspect]
     Active Substance: LEVOTHYROXINE
     Indication: EXPOSURE DURING BREAST FEEDING
     Dosage: UNK
     Route: 064
  3. LAMOTRIGINE. [Suspect]
     Active Substance: LAMOTRIGINE
     Indication: FOETAL EXPOSURE DURING PREGNANCY
     Route: 063
  4. SERTRALINE [Suspect]
     Active Substance: SERTRALINE HYDROCHLORIDE
     Indication: EXPOSURE DURING BREAST FEEDING
     Dosage: UNK
     Route: 063
  5. LAMOTRIGINE. [Suspect]
     Active Substance: LAMOTRIGINE
     Indication: EXPOSURE DURING BREAST FEEDING
     Dosage: UNK
     Route: 064
  6. LEVOTHYROXINE. [Suspect]
     Active Substance: LEVOTHYROXINE
     Indication: FOETAL EXPOSURE DURING PREGNANCY
     Route: 063
  7. MULTI VITAMIN [Suspect]
     Active Substance: VITAMINS
     Indication: FOETAL EXPOSURE DURING PREGNANCY
     Route: 063
  8. FOLIC ACID. [Suspect]
     Active Substance: FOLIC ACID
     Indication: FOETAL EXPOSURE DURING PREGNANCY
     Dosage: UNK
     Route: 064
  9. DOCUSATE SODIUM. [Suspect]
     Active Substance: DOCUSATE SODIUM
     Indication: EXPOSURE DURING BREAST FEEDING
     Dosage: UNK
     Route: 063
  10. ACETAMINOPHEN AND CODEINE [Suspect]
     Active Substance: ACETAMINOPHEN\CODEINE PHOSPHATE
     Indication: FOETAL EXPOSURE DURING PREGNANCY
     Route: 063
  11. DOCUSATE SODIUM. [Suspect]
     Active Substance: DOCUSATE SODIUM
     Indication: FOETAL EXPOSURE DURING PREGNANCY
     Dosage: UNK
     Route: 064
  12. MULTI VITAMIN [Suspect]
     Active Substance: VITAMINS
     Indication: EXPOSURE DURING BREAST FEEDING
     Dosage: UNK
     Route: 064
  13. SERTRALINE [Suspect]
     Active Substance: SERTRALINE HYDROCHLORIDE
     Indication: FOETAL EXPOSURE DURING PREGNANCY
     Dosage: UNK
     Route: 064
  14. NAPROXEN. [Suspect]
     Active Substance: NAPROXEN
     Indication: EXPOSURE DURING BREAST FEEDING
     Dosage: UNK
     Route: 064
  15. ACETAMINOPHEN AND CODEINE [Suspect]
     Active Substance: ACETAMINOPHEN\CODEINE PHOSPHATE
     Indication: EXPOSURE DURING BREAST FEEDING
     Dosage: UNK
     Route: 064
  16. FOLIC ACID. [Suspect]
     Active Substance: FOLIC ACID
     Indication: EXPOSURE DURING BREAST FEEDING
     Dosage: UNK
     Route: 063
  17. ARIPIPRAZOLE. [Suspect]
     Active Substance: ARIPIPRAZOLE
     Indication: EXPOSURE DURING BREAST FEEDING
     Dosage: UNK
     Route: 064
  18. NAPROXEN. [Suspect]
     Active Substance: NAPROXEN
     Indication: FOETAL EXPOSURE DURING PREGNANCY
     Dosage: UNK
     Route: 063

REACTIONS (17)
  - Skin turgor decreased [Unknown]
  - Hypokinesia [Unknown]
  - Skin discolouration [Unknown]
  - Acidosis [Unknown]
  - Acute kidney injury [Recovered/Resolved]
  - Disseminated intravascular coagulation [Unknown]
  - Mucous membrane disorder [Unknown]
  - Weight decrease neonatal [Unknown]
  - Moaning [Unknown]
  - Exposure during breast feeding [Unknown]
  - Pallor [Unknown]
  - Peripheral artery thrombosis [Unknown]
  - Hypernatraemia [Unknown]
  - Hypovolaemic shock [Unknown]
  - Gangrene neonatal [Unknown]
  - Necrosis [Unknown]
  - Foetal exposure during pregnancy [Unknown]
